FAERS Safety Report 19241820 (Version 1)
Quarter: 2021Q2

REPORT INFORMATION
  Report Type: Spontaneous
  Country: US (occurrence: US)
  Receive Date: 20210511
  Receipt Date: 20210511
  Transmission Date: 20210717
  Serious: No
  Sender: FDA-Public Use
  Company Number: None

PATIENT
  Age: 68 Year
  Sex: Male
  Weight: 65.84 kg

DRUGS (4)
  1. CLONAZEPAM. [Concomitant]
     Active Substance: CLONAZEPAM
  2. FAMOTIDINE. [Concomitant]
     Active Substance: FAMOTIDINE
  3. OLANZAPINE. [Suspect]
     Active Substance: OLANZAPINE
     Dates: start: 20210224, end: 20210312
  4. MODERNA COVID?19 VACCINE [Suspect]
     Active Substance: CX-024414

REACTIONS (6)
  - Confusional state [None]
  - Agitation [None]
  - Delirium [None]
  - Moaning [None]
  - Seizure [None]
  - Eye movement disorder [None]

NARRATIVE: CASE EVENT DATE: 20210312
